FAERS Safety Report 10064639 (Version 1)
Quarter: 2014Q2

REPORT INFORMATION
  Report Type: Spontaneous
  Country: SE (occurrence: SE)
  Receive Date: 20140408
  Receipt Date: 20140408
  Transmission Date: 20141212
  Serious: Yes (Other)
  Sender: FDA-Public Use
  Company Number: SE-SA-2014SA038877

PATIENT
  Age: 66 Year
  Sex: Female

DRUGS (2)
  1. ARAVA [Suspect]
     Indication: PRODUCT USED FOR UNKNOWN INDICATION
     Route: 065
     Dates: start: 20131128, end: 20140226
  2. ACE INHIBITOR NOS [Concomitant]

REACTIONS (4)
  - Cough [Unknown]
  - Pyrexia [Unknown]
  - Eosinophilia [Unknown]
  - Oedema mucosal [Unknown]
